FAERS Safety Report 23448585 (Version 1)
Quarter: 2024Q1

REPORT INFORMATION
  Report Type: Spontaneous
  Country: RU (occurrence: RU)
  Receive Date: 20240127
  Receipt Date: 20240127
  Transmission Date: 20240410
  Serious: Yes (Hospitalization)
  Sender: FDA-Public Use
  Company Number: RU-JNJFOC-20231172553

PATIENT
  Age: 45 Year
  Sex: Female
  Weight: 63.15 kg

DRUGS (6)
  1. UPTRAVI [Suspect]
     Active Substance: SELEXIPAG
     Indication: Pulmonary arterial hypertension
     Route: 048
     Dates: start: 202304, end: 202311
  2. UPTRAVI [Suspect]
     Active Substance: SELEXIPAG
     Indication: Pulmonary arterial hypertension
  3. BOSENTAN [Concomitant]
     Active Substance: BOSENTAN
     Indication: Pulmonary arterial hypertension
     Dates: start: 2013
  4. SILDENAFIL [Concomitant]
     Active Substance: SILDENAFIL
  5. ILOPROST [Concomitant]
     Active Substance: ILOPROST
  6. IVABRADINE [Concomitant]
     Active Substance: IVABRADINE

REACTIONS (6)
  - Hospitalisation [Unknown]
  - Cardiomegaly [Unknown]
  - Chest pain [Recovered/Resolved]
  - Dyspnoea [Unknown]
  - Pulmonary arterial pressure increased [Unknown]
  - Coronary artery compression [Unknown]

NARRATIVE: CASE EVENT DATE: 20231001
